FAERS Safety Report 21273654 (Version 1)
Quarter: 2022Q3

REPORT INFORMATION
  Report Type: Other
  Country: TW (occurrence: None)
  Receive Date: 20220831
  Receipt Date: 20220831
  Transmission Date: 20221026
  Serious: Yes (Death)
  Sender: FDA-Public Use
  Company Number: TW-ROCHE-3168476

PATIENT

DRUGS (1)
  1. RIBAVIRIN [Suspect]
     Active Substance: RIBAVIRIN
     Indication: Chronic hepatitis C
     Route: 048

REACTIONS (1)
  - Death [Fatal]
